FAERS Safety Report 25714235 (Version 1)
Quarter: 2025Q3

REPORT INFORMATION
  Report Type: Spontaneous
  Country: US (occurrence: US)
  Receive Date: 20250822
  Receipt Date: 20250822
  Transmission Date: 20251020
  Serious: No
  Sender: GRIFOLS
  Company Number: US-IGSA-BIG0035134

PATIENT
  Age: 60 Year
  Sex: Male

DRUGS (3)
  1. XEMBIFY [Suspect]
     Active Substance: HUMAN IMMUNOGLOBULIN G
     Indication: Blood immunoglobulin A decreased
     Dosage: 12 GRAM, Q.WK.
     Route: 058
     Dates: start: 20250430
  2. XEMBIFY [Suspect]
     Active Substance: HUMAN IMMUNOGLOBULIN G
     Dosage: 12 GRAM, Q.WK.
     Route: 058
     Dates: start: 20250507
  3. XEMBIFY [Suspect]
     Active Substance: HUMAN IMMUNOGLOBULIN G
     Dosage: 12 GRAM, Q.WK.
     Route: 058
     Dates: start: 202102

REACTIONS (6)
  - Infusion site erythema [Unknown]
  - Infusion site pruritus [Unknown]
  - Infusion site warmth [Unknown]
  - Infusion site pain [Recovering/Resolving]
  - Infusion site discomfort [Recovering/Resolving]
  - Infusion site irritation [Recovering/Resolving]

NARRATIVE: CASE EVENT DATE: 20250430
